FAERS Safety Report 25986478 (Version 1)
Quarter: 2025Q4

REPORT INFORMATION
  Report Type: Spontaneous
  Country: EU (occurrence: EU)
  Receive Date: 20251031
  Receipt Date: 20251031
  Transmission Date: 20260119
  Serious: Yes (Hospitalization, Other)
  Sender: PFIZER
  Company Number: None

PATIENT
  Age: 51 Year
  Sex: Male
  Weight: 83 kg

DRUGS (5)
  1. CISPLATIN [Suspect]
     Active Substance: CISPLATIN
     Indication: Mantle cell lymphoma stage IV
     Dosage: 200 MG, CYCLIC (100MG/M2 (200 MG), DAY +2)
     Route: 042
     Dates: start: 20250812, end: 20250907
  2. CYTARABINE [Suspect]
     Active Substance: CYTARABINE
     Indication: Mantle cell lymphoma stage IV
     Dosage: 4.05 G, CYCLIC (2G/M2 (4,056 MG) EVERY 12 HOURS, DAY +3)
     Route: 042
     Dates: start: 20250812, end: 20250908
  3. VINCRISTINE SULFATE [Suspect]
     Active Substance: VINCRISTINE SULFATE
     Indication: Mantle cell lymphoma stage IV
     Dosage: 1.4 MG/M2, CYCLIC
     Route: 042
     Dates: start: 20250812, end: 20250906
  4. RITUXIMAB [Suspect]
     Active Substance: RITUXIMAB
     Indication: Mantle cell lymphoma stage IV
     Dosage: 375 MG/M2, CYCLIC
     Route: 042
     Dates: start: 20250812, end: 20250906
  5. CYCLOPHOSPHAMIDE [Suspect]
     Active Substance: CYCLOPHOSPHAMIDE
     Indication: Mantle cell lymphoma stage IV
     Dosage: 750 MG/M2, CYCLIC
     Route: 042
     Dates: start: 20250812, end: 20250906

REACTIONS (2)
  - Acute kidney injury [Recovered/Resolved]
  - Off label use [Unknown]

NARRATIVE: CASE EVENT DATE: 20250812
